FAERS Safety Report 20852148 (Version 1)
Quarter: 2022Q2

REPORT INFORMATION
  Report Type: Spontaneous
  Country: IN (occurrence: IN)
  Receive Date: 20220520
  Receipt Date: 20220520
  Transmission Date: 20220721
  Serious: Yes (Other)
  Sender: FDA-Public Use
  Company Number: IN-QUAGEN-2022QUALIT00032

PATIENT
  Age: 65 Year
  Sex: Male

DRUGS (1)
  1. TRIAMCINOLONE ACETONIDE [Suspect]
     Active Substance: TRIAMCINOLONE ACETONIDE
     Indication: Cataract operation
     Dosage: 4 MG/0.2 ML
     Route: 057

REACTIONS (2)
  - Chorioretinopathy [Recovered/Resolved]
  - Product use in unapproved indication [Unknown]
